FAERS Safety Report 4563020-2 (Version None)
Quarter: 2005Q2

REPORT INFORMATION
  Report Type: 
  Country: None (occurrence: None)
  Receive Date: 20050126
  Receipt Date: 20050119
  Transmission Date: 20051028
  Serious: Yes (Hospitalization)
  Sender: FDA-Public Use
  Company Number: 05-01-0084

PATIENT
  Age: 52 Year
  Sex: Male

DRUGS (7)
  1. CLOZAPINE [Suspect]
     Indication: SCHIZOPHRENIA
     Dosage: 600MG QD ORAL
     Route: 048
     Dates: start: 20010901
  2. GEODON [Concomitant]
  3. SEROQUEL [Concomitant]
  4. ZOLOFT [Concomitant]
  5. DDAVP [Concomitant]
  6. PREVACID [Concomitant]
  7. HYDROXYZINE [Concomitant]

REACTIONS (7)
  - BACTERIAL INFECTION [None]
  - BLOOD CULTURE POSITIVE [None]
  - DEHYDRATION [None]
  - DIABETES INSIPIDUS [None]
  - ERYTHEMA [None]
  - SMALL INTESTINAL OBSTRUCTION [None]
  - VOLVULUS OF BOWEL [None]
